FAERS Safety Report 16365431 (Version 4)
Quarter: 2019Q3

REPORT INFORMATION
  Report Type: Report from Study
  Country: FR (occurrence: FR)
  Receive Date: 20190529
  Receipt Date: 20190910
  Transmission Date: 20191004
  Serious: Yes (Other)
  Sender: FDA-Public Use
  Company Number: PHHY2019FR059161

PATIENT
  Age: 75 Year
  Sex: Male
  Weight: 76.2 kg

DRUGS (2)
  1. ADOPORT [Suspect]
     Active Substance: TACROLIMUS
     Dosage: 3 MG, UNK
     Route: 048
     Dates: end: 20190429
  2. ADOPORT [Suspect]
     Active Substance: TACROLIMUS
     Indication: RENAL TRANSPLANT
     Dosage: 7 MG, UNK
     Route: 048
     Dates: start: 20190220

REACTIONS (3)
  - BK virus infection [Recovered/Resolved]
  - Polymerase chain reaction positive [Recovered/Resolved]
  - Hypertension [Recovered/Resolved]

NARRATIVE: CASE EVENT DATE: 20190303
